FAERS Safety Report 4943282-X (Version None)
Quarter: 2006Q1

REPORT INFORMATION
  Report Type: 
  Country: None (occurrence: None)
  Receive Date: 20060314
  Receipt Date: 20020725
  Transmission Date: 20060701
  Serious: Yes (Hospitalization)
  Sender: FDA-Public Use
  Company Number: IT-ROCHE-318020

PATIENT
  Age: 57 Year
  Sex: Male
  Weight: 75 kg

DRUGS (4)
  1. PEG-INTERFERON ALFA 2A (RO 25-8310) [Suspect]
     Dosage: FORM REPORTED AS PREFILLED SYRINGE.
     Route: 058
     Dates: start: 20020502, end: 20020516
  2. RIBAVIRIN [Suspect]
     Route: 048
     Dates: start: 20020502, end: 20020516
  3. LOSARTAN POTASSIUM [Concomitant]
     Dates: start: 20000515
  4. IDROCLOROTIAZIDE [Concomitant]
     Dates: start: 20000515

REACTIONS (2)
  - HYPERTROPHIC CARDIOMYOPATHY [None]
  - PALPITATIONS [None]
